FAERS Safety Report 25809367 (Version 2)
Quarter: 2025Q4

REPORT INFORMATION
  Report Type: Spontaneous
  Country: US (occurrence: US)
  Receive Date: 20250916
  Receipt Date: 20251106
  Transmission Date: 20260118
  Serious: No
  Sender: SANOFI AVENTIS
  Company Number: US-SA-2025SA274405

PATIENT
  Age: 12 Year
  Sex: Female

DRUGS (2)
  1. DUPIXENT [Suspect]
     Active Substance: DUPILUMAB
     Indication: Eosinophilic gastritis
     Dosage: 300 MG, QOW
     Route: 030
     Dates: start: 20250827
  2. DUPIXENT [Suspect]
     Active Substance: DUPILUMAB
     Indication: Gastroenteritis

REACTIONS (11)
  - Fatigue [Recovered/Resolved]
  - Dizziness [Recovered/Resolved]
  - Swelling of eyelid [Recovered/Resolved]
  - Injection site swelling [Recovered/Resolved]
  - Injection site pain [Recovered/Resolved]
  - Arthralgia [Recovered/Resolved]
  - Presyncope [Not Recovered/Not Resolved]
  - Insomnia [Recovered/Resolved]
  - Therapeutic response unexpected [Unknown]
  - Product use in unapproved indication [Unknown]
  - Incorrect route of product administration [Unknown]

NARRATIVE: CASE EVENT DATE: 20250101
